FAERS Safety Report 16231355 (Version 5)
Quarter: 2020Q4

REPORT INFORMATION
  Report Type: Report from Study
  Country: None (occurrence: IL)
  Receive Date: 20190424
  Receipt Date: 20201123
  Transmission Date: 20210113
  Serious: Yes (Hospitalization)
  Sender: FDA-Public Use
  Company Number: IL-ABBVIE-19K-082-2751626-00

PATIENT
  Sex: Male

DRUGS (3)
  1. HUMIRA [Suspect]
     Active Substance: ADALIMUMAB
     Route: 058
     Dates: start: 20190122, end: 2019
  2. HUMIRA [Suspect]
     Active Substance: ADALIMUMAB
     Indication: CROHN^S DISEASE
     Route: 058
     Dates: start: 20160101, end: 2018
  3. HUMIRA [Suspect]
     Active Substance: ADALIMUMAB
     Indication: CROHN^S DISEASE
     Route: 058
     Dates: start: 2019, end: 20190808

REACTIONS (15)
  - Aphthous ulcer [Unknown]
  - Arthralgia [Recovered/Resolved]
  - Abdominal pain [Unknown]
  - Crohn^s disease [Recovering/Resolving]
  - Wrong technique in product usage process [Unknown]
  - Gait inability [Recovering/Resolving]
  - Dyschezia [Not Recovered/Not Resolved]
  - Gait disturbance [Recovering/Resolving]
  - Drug ineffective [Unknown]
  - Crohn^s disease [Recovering/Resolving]
  - Stomatitis [Unknown]
  - Inflammation [Recovering/Resolving]
  - Abdominal pain lower [Not Recovered/Not Resolved]
  - Anal fistula [Not Recovered/Not Resolved]
  - Drug specific antibody present [Unknown]

NARRATIVE: CASE EVENT DATE: 2017
